FAERS Safety Report 25263224 (Version 1)
Quarter: 2025Q2

REPORT INFORMATION
  Report Type: Spontaneous
  Country: AU (occurrence: AU)
  Receive Date: 20250502
  Receipt Date: 20250502
  Transmission Date: 20250717
  Serious: Yes (Other)
  Sender: ACCORD
  Company Number: None

PATIENT
  Age: 40 Year
  Sex: Male

DRUGS (7)
  1. MYCOPHENOLATE MOFETIL [Suspect]
     Active Substance: MYCOPHENOLATE MOFETIL
     Indication: Product used for unknown indication
  2. AZATHIOPRINE [Concomitant]
     Active Substance: AZATHIOPRINE
  3. BETAMETHASONE DIPROPIONATE [Concomitant]
     Active Substance: BETAMETHASONE DIPROPIONATE
  4. CYCLOSPORINE [Concomitant]
     Active Substance: CYCLOSPORINE
  5. DUPILUMAB [Concomitant]
     Active Substance: DUPILUMAB
  6. METHOTREXATE [Concomitant]
     Active Substance: METHOTREXATE
  7. TACROLIMUS [Concomitant]
     Active Substance: TACROLIMUS

REACTIONS (4)
  - Renal cell carcinoma [Unknown]
  - Metastases to lung [Unknown]
  - Haematuria [Unknown]
  - Drug ineffective [Unknown]
